FAERS Safety Report 10751589 (Version 1)
Quarter: 2015Q1

REPORT INFORMATION
  Report Type: Spontaneous
  Country: IT (occurrence: IT)
  Receive Date: 20150130
  Receipt Date: 20150130
  Transmission Date: 20150721
  Serious: Yes (Hospitalization)
  Sender: FDA-Public Use
  Company Number: IT-SA-2015SA008002

PATIENT
  Age: 81 Year
  Sex: Male

DRUGS (9)
  1. ADENURIC [Suspect]
     Active Substance: FEBUXOSTAT
     Indication: GOUT
     Route: 048
     Dates: start: 20140101, end: 20140701
  2. SERETIDE [Concomitant]
     Active Substance: FLUTICASONE FUROATE\SALMETEROL XINAFOATE
  3. PALEXIA [Concomitant]
     Active Substance: TAPENTADOL HYDROCHLORIDE
  4. CARDICOR [Concomitant]
     Active Substance: BISOPROLOL
  5. LUCEN [Concomitant]
     Active Substance: ESOMEPRAZOLE
  6. MEDROL [Concomitant]
     Active Substance: METHYLPREDNISOLONE
  7. SINTROM [Concomitant]
     Active Substance: ACENOCOUMAROL
  8. LANOXIN [Concomitant]
     Active Substance: DIGOXIN
  9. LASIX [Suspect]
     Active Substance: FUROSEMIDE
     Indication: CARDIAC FAILURE
     Route: 048
     Dates: start: 20120101, end: 20140701

REACTIONS (5)
  - Oedema [Recovering/Resolving]
  - Hypocalcaemia [Recovering/Resolving]
  - Acute kidney injury [Recovering/Resolving]
  - Hyponatraemia [Recovering/Resolving]
  - Hyperkalaemia [Recovering/Resolving]

NARRATIVE: CASE EVENT DATE: 20140702
